FAERS Safety Report 20052611 (Version 1)
Quarter: 2021Q4

REPORT INFORMATION
  Report Type: Spontaneous
  Country: US (occurrence: None)
  Receive Date: 20211109
  Receipt Date: 20211109
  Transmission Date: 20220303
  Serious: Yes (Hospitalization)
  Sender: FDA-Public Use
  Company Number: None

PATIENT
  Age: 51 Year
  Sex: Female
  Weight: 88.65 kg

DRUGS (2)
  1. CASIRIVIMAB\IMDEVIMAB [Suspect]
     Active Substance: CASIRIVIMAB\IMDEVIMAB
     Indication: COVID-19
     Dosage: OTHER FREQUENCY : ONCE;?
     Route: 042
     Dates: start: 20211102, end: 20211102
  2. BARICITINIB [Concomitant]
     Active Substance: BARICITINIB
     Dates: start: 202111

REACTIONS (8)
  - Hypoxia [None]
  - Pulmonary embolism [None]
  - Lymphopenia [None]
  - Pneumonia [None]
  - Lung infiltration [None]
  - Pneumonia viral [None]
  - Electrocardiogram QT prolonged [None]
  - Tachycardia [None]

NARRATIVE: CASE EVENT DATE: 20211103
